FAERS Safety Report 22752509 (Version 2)
Quarter: 2024Q1

REPORT INFORMATION
  Report Type: Spontaneous
  Country: IT (occurrence: None)
  Receive Date: 20230726
  Receipt Date: 20240219
  Transmission Date: 20240409
  Serious: Yes (Other)
  Sender: FDA-Public Use
  Company Number: IT-ROCHE-3371189

PATIENT
  Sex: Female

DRUGS (1)
  1. OCREVUS [Suspect]
     Active Substance: OCRELIZUMAB
     Indication: Relapsing-remitting multiple sclerosis
     Dosage: LAST INFUSION WAS ON 12/JUL/2023
     Route: 042
     Dates: start: 20220105

REACTIONS (3)
  - Maternal exposure before pregnancy [Unknown]
  - Hyperemesis gravidarum [Unknown]
  - Maternal exposure during pregnancy [Unknown]
